FAERS Safety Report 21875423 (Version 5)
Quarter: 2023Q1

REPORT INFORMATION
  Report Type: Spontaneous
  Country: US (occurrence: US)
  Receive Date: 20230118
  Receipt Date: 20230306
  Transmission Date: 20230418
  Serious: Yes (Other)
  Sender: FDA-Public Use
  Company Number: US-JNJFOC-20230127850

PATIENT
  Age: 58 Year
  Sex: Male
  Weight: 104.42 kg

DRUGS (11)
  1. TREMFYA [Suspect]
     Active Substance: GUSELKUMAB
     Indication: Psoriatic arthropathy
     Route: 058
     Dates: start: 202212
  2. TREMFYA [Suspect]
     Active Substance: GUSELKUMAB
     Route: 058
  3. OMEPRAZOLE [Concomitant]
     Active Substance: OMEPRAZOLE
  4. TRAMADOL [Concomitant]
     Active Substance: TRAMADOL
  5. PREDNISONE [Concomitant]
     Active Substance: PREDNISONE
  6. FOLIC ACID [Concomitant]
     Active Substance: FOLIC ACID
  7. TRIAMCINOLONE [Concomitant]
     Active Substance: TRIAMCINOLONE
  8. SENNA LEAF [Concomitant]
     Active Substance: SENNA LEAF
  9. LOSARTAN [Concomitant]
     Active Substance: LOSARTAN
     Indication: Hypertension
  10. HYDROXYZINE [Concomitant]
     Active Substance: HYDROXYZINE HYDROCHLORIDE
     Indication: Anxiety
  11. HYDROXYZINE [Concomitant]
     Active Substance: HYDROXYZINE HYDROCHLORIDE
     Indication: Pruritus

REACTIONS (5)
  - Psoriatic arthropathy [Unknown]
  - Product storage error [Unknown]
  - Dry skin [Unknown]
  - Urticaria [Unknown]
  - Product dose omission issue [Unknown]

NARRATIVE: CASE EVENT DATE: 20230112
